FAERS Safety Report 22292076 (Version 4)
Quarter: 2024Q2

REPORT INFORMATION
  Report Type: Report from Study
  Country: US (occurrence: US)
  Receive Date: 20230508
  Receipt Date: 20240522
  Transmission Date: 20240716
  Serious: Yes (Hospitalization, Other)
  Sender: FDA-Public Use
  Company Number: US-Merck Healthcare KGaA-9399749

PATIENT
  Sex: Female

DRUGS (2)
  1. MAVENCLAD [Suspect]
     Active Substance: CLADRIBINE
     Indication: Multiple sclerosis
     Dosage: YEAR ONE MONTH ONE THERAPY
     Route: 048
     Dates: start: 20220829
  2. MAVENCLAD [Suspect]
     Active Substance: CLADRIBINE
     Dosage: YEAR ONE MONTH TWO THERAPY
     Route: 048
     Dates: end: 20220930

REACTIONS (9)
  - Cystocele [Unknown]
  - Urinary tract infection [Unknown]
  - COVID-19 [Unknown]
  - Thrombosis [Unknown]
  - Multiple sclerosis relapse [Unknown]
  - Gingival ulceration [Unknown]
  - Dyschezia [Unknown]
  - Anal sphincter atony [Unknown]
  - Stress [Unknown]
